FAERS Safety Report 21320546 (Version 2)
Quarter: 2023Q1

REPORT INFORMATION
  Report Type: Report from Study
  Country: DE (occurrence: DE)
  Receive Date: 20220912
  Receipt Date: 20230201
  Transmission Date: 20230418
  Serious: Yes (Other)
  Sender: FDA-Public Use
  Company Number: DE-JNJFOC-20220105085

PATIENT
  Age: 43 Year
  Sex: Female

DRUGS (3)
  1. GUSELKUMAB [Suspect]
     Active Substance: GUSELKUMAB
     Indication: Psoriasis
     Route: 065
     Dates: start: 20210624
  2. GUSELKUMAB [Suspect]
     Active Substance: GUSELKUMAB
     Route: 065
  3. GUSELKUMAB [Suspect]
     Active Substance: GUSELKUMAB
     Route: 065

REACTIONS (4)
  - Psoriatic arthropathy [Not Recovered/Not Resolved]
  - Nasopharyngitis [Recovered/Resolved]
  - Headache [Recovered/Resolved]
  - Psoriasis [Recovered/Resolved]

NARRATIVE: CASE EVENT DATE: 20210624
